FAERS Safety Report 8521947-0 (Version None)
Quarter: 2012Q3

REPORT INFORMATION
  Report Type: 
  Country: None (occurrence: None)
  Receive Date: 20120719
  Receipt Date: 20120608
  Transmission Date: 20120928
  Serious: Yes (Hospitalization)
  Sender: FDA-Public Use
  Company Number: US-BRISTOL-MYERS SQUIBB COMPANY-16687188

PATIENT
  Age: 6 Decade
  Sex: Male

DRUGS (1)
  1. YERVOY [Suspect]
     Dates: start: 20120510

REACTIONS (1)
  - PNEUMONITIS [None]
